FAERS Safety Report 13367372 (Version 2)
Quarter: 2017Q2

REPORT INFORMATION
  Report Type: Spontaneous
  Country: BR (occurrence: BR)
  Receive Date: 20170324
  Receipt Date: 20170516
  Transmission Date: 20170830
  Serious: Yes (Life-Threatening, Hospitalization, Other)
  Sender: FDA-Public Use
  Company Number: BR-STRIDES ARCOLAB LIMITED-2017SP004972

PATIENT

DRUGS (9)
  1. VANCOMYCIN [Suspect]
     Active Substance: VANCOMYCIN
     Indication: ENDOPHTHALMITIS
     Dosage: UNK, UNKNOWN
     Route: 031
  2. MEROPENEM. [Suspect]
     Active Substance: MEROPENEM
     Indication: ENTEROBACTER TEST POSITIVE
     Dosage: UNK, UNKNOWN
     Route: 042
  3. MEROPENEM. [Suspect]
     Active Substance: MEROPENEM
     Indication: ENDOPHTHALMITIS
  4. CEPHALOTHIN                        /00010901/ [Suspect]
     Active Substance: CEPHALOTHIN
     Indication: ENDOPHTHALMITIS
     Dosage: UNK, UNKNOWN
     Route: 042
  5. POLYMYXIN B. [Concomitant]
     Active Substance: POLYMYXIN B
     Indication: EVIDENCE BASED TREATMENT
     Route: 042
  6. ATROPINE. [Concomitant]
     Active Substance: ATROPINE
     Indication: ENDOPHTHALMITIS
     Dosage: UNK, UNKNOWN
     Route: 065
  7. CEFTAZIDIME. [Suspect]
     Active Substance: CEFTAZIDIME
     Indication: ENDOPHTHALMITIS
     Dosage: UNK, UNKNOWN
     Route: 065
  8. VANCOMYCIN [Suspect]
     Active Substance: VANCOMYCIN
     Dosage: UNK
     Route: 042
  9. MOXIFLOXACIN. [Suspect]
     Active Substance: MOXIFLOXACIN
     Indication: ENDOPHTHALMITIS
     Dosage: UNK, UNKNOWN
     Route: 061

REACTIONS (16)
  - Tachycardia [Recovered/Resolved]
  - Eosinophilia [Recovered/Resolved]
  - Urine output decreased [Recovered/Resolved]
  - Pyrexia [Recovered/Resolved]
  - Hypotension [Recovered/Resolved]
  - Tachypnoea [Recovered/Resolved]
  - Tremor [Recovered/Resolved]
  - Disorientation [Recovered/Resolved]
  - Rash macular [Recovered/Resolved]
  - Hepatic enzyme increased [Recovered/Resolved]
  - Hypertension [Recovered/Resolved]
  - Hyponatraemia [Recovered/Resolved]
  - Dermatitis allergic [Recovered/Resolved]
  - Drug reaction with eosinophilia and systemic symptoms [Recovered/Resolved]
  - Leukopenia [Recovered/Resolved]
  - Blood creatinine increased [Recovered/Resolved]
